FAERS Safety Report 23770659 (Version 1)
Quarter: 2024Q2

REPORT INFORMATION
  Report Type: Spontaneous
  Country: JP (occurrence: JP)
  Receive Date: 20240422
  Receipt Date: 20240422
  Transmission Date: 20240716
  Serious: Yes (Other)
  Sender: FDA-Public Use
  Company Number: JP-MTPC-MTPC2024-0008296

PATIENT
  Age: 73 Year
  Sex: Male

DRUGS (2)
  1. EDARAVONE [Suspect]
     Active Substance: EDARAVONE
     Route: 048
  2. EDARAVONE [Suspect]
     Active Substance: EDARAVONE
     Route: 048

REACTIONS (3)
  - Tracheostomy [Unknown]
  - Mechanical ventilation [Unknown]
  - Oxygen therapy [Unknown]
